FAERS Safety Report 19167397 (Version 2)
Quarter: 2021Q2

REPORT INFORMATION
  Report Type: Spontaneous
  Country: CA (occurrence: CA)
  Receive Date: 20210422
  Receipt Date: 20210621
  Transmission Date: 20210717
  Serious: Yes (Hospitalization, Other)
  Sender: FDA-Public Use
  Company Number: CA-CELLTRION INC.-2021CA001196

PATIENT

DRUGS (16)
  1. INFLECTRA [Suspect]
     Active Substance: INFLIXIMAB-DYYB
     Dosage: 400 MG EVERY 8 WEEKS
     Route: 042
     Dates: start: 20210105
  2. INFLECTRA [Suspect]
     Active Substance: INFLIXIMAB-DYYB
     Dosage: 400 MG EVERY 8 WEEKS
     Route: 042
     Dates: start: 20210120
  3. INFLECTRA [Suspect]
     Active Substance: INFLIXIMAB-DYYB
     Dosage: 400 MG EVERY 8 WEEKS
     Route: 042
     Dates: start: 20210120
  4. GRAVOL [Concomitant]
     Active Substance: DIMENHYDRINATE
     Indication: PREMEDICATION
     Dosage: 50 MG
     Route: 048
     Dates: start: 20210217, end: 20210217
  5. INFLECTRA [Suspect]
     Active Substance: INFLIXIMAB-DYYB
     Dosage: 400 MG, EVERY 8 WEEKS
     Route: 042
     Dates: start: 20210607
  6. HYDROCORTISONE. [Concomitant]
     Active Substance: HYDROCORTISONE
     Dosage: 100 MG
     Route: 042
     Dates: start: 20210217, end: 20210217
  7. METHOTREXATE. [Concomitant]
     Active Substance: METHOTREXATE
     Indication: PSORIATIC ARTHROPATHY
     Dosage: 25 MG, WEEKLY
     Route: 058
  8. TYLENOL [Concomitant]
     Active Substance: ACETAMINOPHEN
     Indication: PREMEDICATION
     Dosage: 650 MG
     Route: 048
     Dates: start: 20210217, end: 20210217
  9. INFLECTRA [Suspect]
     Active Substance: INFLIXIMAB-DYYB
     Dosage: 400 MG, EVERY 8 WEEKS
     Route: 042
     Dates: start: 20210413
  10. HYDROCORTISONE. [Concomitant]
     Active Substance: HYDROCORTISONE
     Indication: PREMEDICATION
     Dosage: 100 MG
     Dates: start: 20210120, end: 20210120
  11. INFLECTRA [Suspect]
     Active Substance: INFLIXIMAB-DYYB
     Dosage: 400 MG EVERY 8 WEEKS
     Route: 042
     Dates: start: 20210105
  12. BENADRYL [Concomitant]
     Active Substance: DIPHENHYDRAMINE HYDROCHLORIDE
     Dosage: 50 MG
     Route: 048
     Dates: start: 20210217, end: 20210217
  13. INFLECTRA [Suspect]
     Active Substance: INFLIXIMAB-DYYB
     Indication: PSORIATIC ARTHROPATHY
     Dosage: 400 MG, EVERY 8 WEEKS
     Dates: start: 20201207
  14. BENADRYL [Concomitant]
     Active Substance: DIPHENHYDRAMINE HYDROCHLORIDE
     Indication: PREMEDICATION
     Dosage: 50 MG
     Dates: start: 20210120, end: 20210120
  15. INFLECTRA [Suspect]
     Active Substance: INFLIXIMAB-DYYB
     Dosage: 400 MG EVERY 8 WEEKS (WEEK 6 INDUCTION AT 400 MG. THEN 400 MG EVERY 8 WEEKS)
     Route: 042
     Dates: start: 20210217
  16. ACETAMINOPHEN. [Concomitant]
     Active Substance: ACETAMINOPHEN
     Indication: PREMEDICATION
     Dosage: 650 MG
     Dates: start: 20210120, end: 20210120

REACTIONS (11)
  - Abdominal pain upper [Recovering/Resolving]
  - Nausea [Unknown]
  - Mental disorder [Recovered/Resolved]
  - Haematochezia [Unknown]
  - Eyelid oedema [Recovered/Resolved]
  - Paraesthesia [Unknown]
  - Arthralgia [Not Recovered/Not Resolved]
  - Joint stiffness [Not Recovered/Not Resolved]
  - Diarrhoea [Recovering/Resolving]
  - Sepsis [Not Recovered/Not Resolved]
  - Abdominal distension [Recovering/Resolving]

NARRATIVE: CASE EVENT DATE: 20210120
